FAERS Safety Report 9107083 (Version 1)
Quarter: 2013Q1

REPORT INFORMATION
  Report Type: Spontaneous
  Country: FR (occurrence: FR)
  Receive Date: 20130221
  Receipt Date: 20130221
  Transmission Date: 20140127
  Serious: Yes (Hospitalization)
  Sender: FDA-Public Use
  Company Number: FR-SANOFI-AVENTIS-2013SA014166

PATIENT
  Age: 49 Year
  Sex: Male

DRUGS (3)
  1. LOVENOX [Suspect]
     Indication: MYOCARDIAL INFARCTION
     Route: 058
     Dates: start: 20121218, end: 20121218
  2. KARDEGIC [Suspect]
     Indication: MYOCARDIAL INFARCTION
     Route: 048
     Dates: start: 20121218, end: 20121218
  3. BRILIQUE [Suspect]
     Indication: MYOCARDIAL INFARCTION
     Dosage: STRENGTH: 90 MG
     Route: 048
     Dates: start: 20121218, end: 20121218

REACTIONS (2)
  - Cardiac arrest [Recovered/Resolved]
  - Post procedural haematoma [Recovered/Resolved]
